FAERS Safety Report 8936706 (Version 3)
Quarter: 2013Q1

REPORT INFORMATION
  Report Type: Spontaneous
  Country: JP (occurrence: JP)
  Receive Date: 20121130
  Receipt Date: 20130131
  Transmission Date: 20140127
  Serious: No
  Sender: FDA-Public Use
  Company Number: JP-PFIZER INC-2012299427

PATIENT
  Age: 72 Year
  Sex: Male

DRUGS (1)
  1. LYRICA [Suspect]
     Indication: RADICULOPATHY
     Dosage: 75 MG/DAY
     Route: 048

REACTIONS (1)
  - Gynaecomastia [Recovered/Resolved]
